FAERS Safety Report 6974888-4 (Version None)
Quarter: 2010Q3

REPORT INFORMATION
  Report Type: 
  Country: None (occurrence: None)
  Receive Date: 20100909
  Receipt Date: 20081223
  Transmission Date: 20110219
  Serious: No
  Sender: FDA-Public Use
  Company Number: US-WYE-H07527609

PATIENT
  Sex: Male

DRUGS (1)
  1. ADVIL PM [Suspect]
     Indication: ARTHRALGIA
     Dosage: 2 CAPLETS X 1
     Route: 048
     Dates: start: 20081221, end: 20081221

REACTIONS (1)
  - RESTLESSNESS [None]
